FAERS Safety Report 9335291 (Version 2)
Quarter: 2015Q1

REPORT INFORMATION
  Report Type: Spontaneous
  Country: US (occurrence: US)
  Receive Date: 20130606
  Receipt Date: 20150318
  Transmission Date: 20150721
  Serious: No
  Sender: FDA-Public Use
  Company Number: US-PFIZER INC-2013166947

PATIENT
  Age: 71 Year
  Sex: Female
  Weight: 77.1 kg

DRUGS (10)
  1. CALCIUM + D [Concomitant]
     Active Substance: CALCIUM\VITAMIN D
  2. SOMAVERT [Suspect]
     Active Substance: PEGVISOMANT
     Dosage: 20 MG, EVERY THIRD DAY
     Route: 058
     Dates: start: 201302
  3. ASPIRIN. [Concomitant]
     Active Substance: ASPIRIN
     Dosage: 325 MG, UNK
  4. FIBERCON [Concomitant]
     Active Substance: CALCIUM POLYCARBOPHIL
     Dosage: 625 MG, UNK
  5. COD-LIVER OIL [Concomitant]
     Active Substance: FISH OIL
     Dosage: UNK
  6. VITAMIN D [Concomitant]
     Active Substance: CHOLECALCIFEROL
     Dosage: 1000 IU, UNK
  7. SOMAVERT [Suspect]
     Active Substance: PEGVISOMANT
     Dosage: ALTERNATE DAY
  8. SOMAVERT [Suspect]
     Active Substance: PEGVISOMANT
     Dosage: 20 MG, ALTERNATE DAY
     Route: 058
     Dates: start: 201209
  9. SOMAVERT [Suspect]
     Active Substance: PEGVISOMANT
     Indication: PITUITARY TUMOUR BENIGN
     Dosage: 20 MG, 1X/DAY
     Route: 058
     Dates: start: 200809
  10. SOMAVERT [Suspect]
     Active Substance: PEGVISOMANT
     Indication: ACROMEGALY
     Dosage: 25 MG, DAILY
     Dates: start: 20091223

REACTIONS (2)
  - Drug ineffective [Unknown]
  - Hot flush [Unknown]

NARRATIVE: CASE EVENT DATE: 201303
